FAERS Safety Report 18543178 (Version 2)
Quarter: 2021Q1

REPORT INFORMATION
  Report Type: Spontaneous
  Country: US (occurrence: US)
  Receive Date: 20201124
  Receipt Date: 20210301
  Transmission Date: 20210419
  Serious: Yes (Other)
  Sender: FDA-Public Use
  Company Number: US-PURDUE-USA-2020-0166215

PATIENT
  Age: 64 Year
  Sex: Female

DRUGS (5)
  1. OXYCONTIN [Suspect]
     Active Substance: OXYCODONE HYDROCHLORIDE
     Indication: PAIN
     Dosage: 10 MG, TID
     Route: 048
  2. OXYCODONE HYDROCHLORIDE (SIMILAR TO NDA 22?272) [Suspect]
     Active Substance: OXYCODONE HYDROCHLORIDE
     Indication: PAIN
     Dosage: 5 MG, Q4H
     Route: 048
  3. SENNOSIDES. [Suspect]
     Active Substance: SENNOSIDES
     Indication: CONSTIPATION
     Dosage: UNK
     Route: 048
  4. OXYCONTIN [Suspect]
     Active Substance: OXYCODONE HYDROCHLORIDE
     Dosage: 20 MG, TID
     Route: 048
  5. OXYCODONE HCL TABLETS (RHODES 91?490) [Suspect]
     Active Substance: OXYCODONE HYDROCHLORIDE
     Indication: PRODUCT USED FOR UNKNOWN INDICATION
     Dosage: UNKNOWN
     Route: 048

REACTIONS (26)
  - Abdominal pain upper [Unknown]
  - Sleep apnoea syndrome [Unknown]
  - Cognitive disorder [Unknown]
  - Chest pain [Unknown]
  - Drug dependence [Unknown]
  - General physical health deterioration [Unknown]
  - Heart rate increased [Unknown]
  - Fatigue [Unknown]
  - Anxiety [Unknown]
  - Hyperhidrosis [Unknown]
  - Withdrawal syndrome [Unknown]
  - Dysphagia [Unknown]
  - Headache [Unknown]
  - Psychiatric symptom [Unknown]
  - Mental impairment [Unknown]
  - Post viral fatigue syndrome [Unknown]
  - Amnesia [Unknown]
  - Disturbance in attention [Unknown]
  - Chronic gastritis [Unknown]
  - Gastrooesophageal reflux disease [Unknown]
  - Supraventricular tachycardia [Unknown]
  - Confusional state [Unknown]
  - Constipation [Unknown]
  - Nervousness [Unknown]
  - Irritability [Unknown]
  - Drug tolerance [Unknown]
